FAERS Safety Report 5683102-1 (Version None)
Quarter: 2008Q1

REPORT INFORMATION
  Report Type: 
  Country: None (occurrence: None)
  Receive Date: 20080327
  Receipt Date: 20080319
  Transmission Date: 20080703
  Serious: Yes (Other)
  Sender: FDA-Public Use
  Company Number: US-GENENTECH-257922

PATIENT
  Sex: Female

DRUGS (14)
  1. AVASTIN [Suspect]
     Indication: MACULAR DEGENERATION
     Dosage: 2.25 MG/ML, UNK
     Route: 031
     Dates: start: 20080206, end: 20080211
  2. HUMALOG [Concomitant]
     Indication: DRUG USE FOR UNKNOWN INDICATION
     Dosage: UNK, TID
     Route: 058
     Dates: start: 20070227
  3. METFORMIN [Concomitant]
     Indication: DRUG USE FOR UNKNOWN INDICATION
     Dosage: 500 MG, BID
     Route: 048
     Dates: start: 20070227
  4. PINDOLOL [Concomitant]
     Indication: DRUG USE FOR UNKNOWN INDICATION
     Dosage: UNK, BID
     Route: 048
     Dates: start: 20070227
  5. ENALAPRIL MALEATE [Concomitant]
     Indication: DRUG USE FOR UNKNOWN INDICATION
     Dosage: 10 MG, QD
     Route: 048
     Dates: start: 20070227
  6. SPIRONOLACTONE [Concomitant]
     Indication: DRUG USE FOR UNKNOWN INDICATION
     Dosage: 25 MG, QD
     Route: 048
     Dates: start: 20070227
  7. LASIX [Concomitant]
     Indication: DRUG USE FOR UNKNOWN INDICATION
     Dosage: 2 TABLET, QAM
     Route: 048
     Dates: start: 20070227
  8. DARVOCET-N 100 [Concomitant]
     Indication: PAIN
     Dosage: UNK, PRN
     Route: 048
  9. COLACE [Concomitant]
     Indication: DRUG USE FOR UNKNOWN INDICATION
     Dosage: 100 MG, BID
     Route: 048
     Dates: start: 20070227
  10. DIGOXIN [Concomitant]
     Indication: DRUG USE FOR UNKNOWN INDICATION
     Dosage: 0.25 MG, QD
     Route: 048
     Dates: start: 20070227
  11. ASPIRIN [Concomitant]
     Indication: DRUG USE FOR UNKNOWN INDICATION
     Dosage: 81 MG, QHS
     Route: 048
     Dates: start: 20070227
  12. ASCORBIC ACID [Concomitant]
     Indication: DRUG USE FOR UNKNOWN INDICATION
     Dosage: 250 MG, QD
     Route: 048
     Dates: start: 20070227
  13. CALCIUM/VITAMIN D [Concomitant]
     Indication: DRUG USE FOR UNKNOWN INDICATION
     Dosage: UNK, QD
     Route: 048
     Dates: start: 20070227
  14. VITAMINS [Concomitant]
     Indication: DRUG USE FOR UNKNOWN INDICATION
     Dosage: 1 UNK, BID
     Route: 048
     Dates: start: 20070227

REACTIONS (2)
  - HYPOPYON [None]
  - VISUAL ACUITY REDUCED [None]
